FAERS Safety Report 4314531-6 (Version None)
Quarter: 2004Q1

REPORT INFORMATION
  Report Type: 
  Country: None (occurrence: None)
  Receive Date: 20040308
  Receipt Date: 20040302
  Transmission Date: 20041129
  Serious: Yes (Death, Hospitalization)
  Sender: FDA-Public Use
  Company Number: 2003188265NL

PATIENT
  Age: 68 Year
  Sex: Male

DRUGS (7)
  1. CAMPTOSAR [Suspect]
     Indication: COLORECTAL CANCER
     Dosage: 500 MG, CYCLIC, IV
     Route: 042
     Dates: start: 20031105, end: 20031105
  2. CAPECITABINE (CAPECITABINE) [Suspect]
     Indication: COLORECTAL CANCER
     Dosage: SEE IMAGE
     Route: 048
     Dates: start: 20031105, end: 20031119
  3. CAPECITABINE (CAPECITABINE) [Suspect]
     Indication: COLORECTAL CANCER
     Dosage: SEE IMAGE
     Route: 048
     Dates: start: 20031119, end: 20031119
  4. PANTOPRAZOLE [Concomitant]
  5. DEXAMETHASONE [Concomitant]
  6. TROPISETRON (TROPISETRON) [Concomitant]
  7. TOLBUTAMIDE (TOLBUTAMIDE) [Concomitant]

REACTIONS (7)
  - DEHYDRATION [None]
  - DIABETIC KETOACIDOSIS [None]
  - DYSPNOEA [None]
  - HYPERGLYCAEMIA [None]
  - HYPERKALAEMIA [None]
  - HYPONATRAEMIA [None]
  - PULMONARY EMBOLISM [None]
